FAERS Safety Report 4749902-7 (Version None)
Quarter: 2005Q3

REPORT INFORMATION
  Report Type: 
  Country: None (occurrence: None)
  Receive Date: 20050822
  Receipt Date: 20050809
  Transmission Date: 20060218
  Serious: Yes (Hospitalization)
  Sender: FDA-Public Use
  Company Number: 2005071289

PATIENT
  Age: 63 Year
  Sex: Male

DRUGS (5)
  1. NIFEDIPINE [Suspect]
     Indication: ANGINA PECTORIS
     Dosage: 30 MG (DAILY), ORAL
     Route: 048
  2. BISOPROLOL FUMARATE [Suspect]
     Indication: HYPERTENSION
     Dosage: (ONCE DAILY), ORAL
     Route: 048
     Dates: end: 20050223
  3. STILNOX (ZOLPIDEM) [Suspect]
     Indication: SLEEP DISORDER
     Dosage: 10 MG (DAILY), ORAL
     Route: 048
     Dates: start: 20031208, end: 20041018
  4. PLAVIX [Suspect]
     Indication: PROSTHESIS IMPLANTATION
     Dosage: (ONCE DAILY), ORAL
     Route: 048
  5. LEXOMIL (BROMAZEPAM) [Concomitant]
     Indication: ANXIETY
     Dosage: 1/2 TABLET (DAILY), ORAL
     Route: 048

REACTIONS (3)
  - DRUG INEFFECTIVE [None]
  - PUSTULAR PSORIASIS [None]
  - TOXIC SKIN ERUPTION [None]
